FAERS Safety Report 22261554 (Version 1)
Quarter: 2023Q2

REPORT INFORMATION
  Report Type: Spontaneous
  Country: US (occurrence: US)
  Receive Date: 20230427
  Receipt Date: 20230427
  Transmission Date: 20230721
  Serious: Yes (Other)
  Sender: FDA-Public Use
  Company Number: US-BAUSCHBL-2023BNL003533

PATIENT
  Age: 10 Year
  Sex: Male

DRUGS (5)
  1. ATROPINE [Suspect]
     Active Substance: ATROPINE
     Indication: Hypotension
     Route: 065
  2. ATROPINE [Suspect]
     Active Substance: ATROPINE
     Indication: Bradycardia
  3. HEPARIN [Concomitant]
     Active Substance: HEPARIN SODIUM
     Indication: Anticoagulant therapy
     Dosage: UPON ARRIVAL
  4. MEROPENEM [Concomitant]
     Active Substance: MEROPENEM
     Indication: Preoperative care
  5. TEICOPLANIN [Concomitant]
     Active Substance: TEICOPLANIN
     Indication: Preoperative care

REACTIONS (1)
  - Therapy non-responder [Unknown]
